FAERS Safety Report 8848141 (Version 1)
Quarter: 2012Q4

REPORT INFORMATION
  Report Type: 
  Country: US (occurrence: US)
  Receive Date: 20121018
  Receipt Date: 20121018
  Transmission Date: 20130627
  Serious: Yes (Hospitalization)
  Sender: FDA-Public Use
  Company Number: US-ROCHE-1131699

PATIENT
  Age: 16 Year
  Sex: Female
  Weight: 31.78 kg

DRUGS (2)
  1. NUTROPIN [Suspect]
     Indication: GROWTH HORMONE DEFICIENCY
     Route: 065
     Dates: start: 199804
  2. SYNTHROID [Concomitant]

REACTIONS (4)
  - Weight abnormal [Unknown]
  - Growth retardation [Unknown]
  - Delayed puberty [Unknown]
  - Eating disorder [Unknown]
